FAERS Safety Report 9596332 (Version 2)
Quarter: 2013Q4

REPORT INFORMATION
  Report Type: Spontaneous
  Country: US (occurrence: US)
  Receive Date: 20131004
  Receipt Date: 20131122
  Transmission Date: 20140711
  Serious: No
  Sender: FDA-Public Use
  Company Number: US-009507513-1309USA003182

PATIENT
  Age: 19 Year
  Sex: Female

DRUGS (1)
  1. IMPLANON [Suspect]
     Indication: CONTRACEPTION
     Dosage: 1 DF, UNK
     Route: 030
     Dates: start: 201010

REACTIONS (8)
  - Device dislocation [Unknown]
  - Amenorrhoea [Not Recovered/Not Resolved]
  - Device deployment issue [Not Recovered/Not Resolved]
  - Device difficult to use [Not Recovered/Not Resolved]
  - Complication of device removal [Not Recovered/Not Resolved]
  - Medical device complication [Not Recovered/Not Resolved]
  - Incorrect route of drug administration [Unknown]
  - Incorrect drug administration duration [Unknown]
